FAERS Safety Report 8476260-7 (Version None)
Quarter: 2012Q2

REPORT INFORMATION
  Report Type: 
  Country: None (occurrence: None)
  Receive Date: 20120628
  Receipt Date: 20120618
  Transmission Date: 20120825
  Serious: No
  Sender: FDA-Public Use
  Company Number: US-JNJFOC-20120609222

PATIENT
  Sex: Male
  Weight: 106.6 kg

DRUGS (3)
  1. DURAGESIC-100 [Suspect]
     Indication: INTERVERTEBRAL DISC DEGENERATION
     Route: 062
  2. HUMALOG [Concomitant]
     Indication: DIABETES MELLITUS
     Route: 065
  3. DURAGESIC-100 [Suspect]
     Indication: SPINAL COLUMN STENOSIS
     Route: 062

REACTIONS (2)
  - PRODUCT QUALITY ISSUE [None]
  - WRONG TECHNIQUE IN DRUG USAGE PROCESS [None]
